FAERS Safety Report 5369863-X (Version None)
Quarter: 2007Q2

REPORT INFORMATION
  Report Type: 
  Country: None (occurrence: None)
  Receive Date: 20070621
  Receipt Date: 20070611
  Transmission Date: 20071010
  Serious: Yes (Hospitalization)
  Sender: FDA-Public Use
  Company Number: 2007AL002363

PATIENT
  Age: 32 Year
  Sex: Male

DRUGS (1)
  1. PHENYTOIN [Suspect]
     Indication: EPILEPSY
     Dosage: 100 MG; Q8H; PO
     Route: 048

REACTIONS (13)
  - BLOOD GLUCOSE INCREASED [None]
  - DIARRHOEA [None]
  - HYPOGAMMAGLOBULINAEMIA [None]
  - IMMUNODEFICIENCY COMMON VARIABLE [None]
  - MUCOSAL INFECTION [None]
  - NEUTROPENIA [None]
  - PURULENCE [None]
  - PYREXIA [None]
  - RHINORRHOEA [None]
  - SINUSITIS [None]
  - TRACHEOBRONCHITIS [None]
  - WEIGHT DECREASED [None]
  - WHITE BLOOD CELL COUNT DECREASED [None]
